FAERS Safety Report 5131627-X (Version None)
Quarter: 2006Q4

REPORT INFORMATION
  Report Type: 
  Country: None (occurrence: None)
  Receive Date: 20061020
  Receipt Date: 20060207
  Transmission Date: 20070319
  Serious: Yes (Other)
  Sender: FDA-Public Use
  Company Number: 2006AP00653

PATIENT
  Age: 2 Month
  Sex: Male
  Weight: 5.6 kg

DRUGS (2)
  1. PULMICORT [Suspect]
     Indication: ASTHMA
     Dosage: 600-800 UG FROM 6TH MONTH GESTATION
     Route: 064
     Dates: start: 20050501
  2. PULMICORT [Suspect]
     Route: 063

REACTIONS (6)
  - ADRENAL CORTICAL INSUFFICIENCY [None]
  - ADRENOCORTICAL INSUFFICIENCY NEONATAL [None]
  - DERMATITIS [None]
  - DRUG EXPOSURE DURING PREGNANCY [None]
  - DRUG EXPOSURE VIA BREAST MILK [None]
  - NEUTROPENIA [None]
